FAERS Safety Report 9586482 (Version 1)
Quarter: 2013Q3

REPORT INFORMATION
  Report Type: Spontaneous
  Country: TR (occurrence: None)
  Receive Date: 20130926
  Receipt Date: 20130926
  Transmission Date: 20140515
  Serious: Yes (Hospitalization)
  Sender: FDA-Public Use
  Company Number: 2013-01377

PATIENT
  Age: 30 Year
  Sex: Male

DRUGS (2)
  1. VALPROIC ACID (UNKNOWN) [Suspect]
     Indication: STATUS EPILEPTICUS
     Route: 042
  2. LAMOTRIGINE (LAMOTRIGINE) [Suspect]
     Indication: STATUS EPILEPTICUS

REACTIONS (1)
  - Psychotic disorder [None]
